FAERS Safety Report 7360658-4 (Version None)
Quarter: 2011Q1

REPORT INFORMATION
  Report Type: 
  Country: None (occurrence: None)
  Receive Date: 20110318
  Receipt Date: 20110304
  Transmission Date: 20110831
  Serious: Yes (Life-Threatening, Hospitalization)
  Sender: FDA-Public Use
  Company Number: GB-RANBAXY-2011R1-42956

PATIENT
  Age: 69 Year
  Sex: Male

DRUGS (9)
  1. AMLODIPINE [Concomitant]
     Indication: HYPERTENSION
     Dosage: 10 MG, 1 / 1 DAYS
     Route: 048
     Dates: start: 20110126
  2. METFORMIN HCL [Suspect]
     Indication: PRODUCT USED FOR UNKNOWN INDICATION
     Dosage: 500 MG, 3/ 1 DAYS
     Route: 048
     Dates: start: 20110105, end: 20110126
  3. TIMOLOL [Concomitant]
     Indication: HYPERTENSION
     Dosage: 10 MG, 1/ 1 DAYS
     Route: 048
     Dates: start: 20110126
  4. ASPIRIN [Concomitant]
     Indication: PRODUCT USED FOR UNKNOWN INDICATION
     Dosage: 75 MG, 1/1 DAYS
     Route: 048
     Dates: start: 20110126
  5. BENDROFLUMETHIAZIDE [Concomitant]
     Indication: HYPERTENSION
     Dosage: 12.5 MG, 1/ 1 DAYS
     Route: 048
     Dates: start: 20110126
  6. METOCLORAMIDE [Concomitant]
     Indication: VOMITING
  7. SIMVASTATIN [Concomitant]
     Indication: PRODUCT USED FOR UNKNOWN INDICATION
     Dosage: 80 MG, 1/ 1 DAYS
     Route: 048
     Dates: start: 20110126
  8. IBUPROFEN [Suspect]
     Indication: TOOTHACHE
     Dosage: 1 DAYS
     Route: 048
     Dates: start: 20110121, end: 20110126
  9. METOCLORAMIDE [Concomitant]
     Indication: NAUSEA
     Dosage: 10 MG, 3/1 DAYS
     Route: 048
     Dates: start: 20110126

REACTIONS (5)
  - RENAL FAILURE ACUTE [None]
  - HYPONATRAEMIA [None]
  - DIARRHOEA [None]
  - HYPERKALAEMIA [None]
  - VOMITING [None]
